FAERS Safety Report 11459183 (Version 2)
Quarter: 2016Q3

REPORT INFORMATION
  Report Type: Spontaneous
  Country: US (occurrence: US)
  Receive Date: 20150904
  Receipt Date: 20160908
  Transmission Date: 20161109
  Serious: Yes (Other)
  Sender: FDA-Public Use
  Company Number: US-PFIZER INC-2015293356

PATIENT
  Age: 50 Year
  Sex: Female
  Weight: 43.54 kg

DRUGS (3)
  1. CHANTIX [Suspect]
     Active Substance: VARENICLINE TARTRATE
     Dosage: UNK UNK, 2X/DAY (TOOK WHITE PILLS TWICE A DAY FOR TWO DAYS)
     Dates: end: 2015
  2. CHANTIX [Suspect]
     Active Substance: VARENICLINE TARTRATE
     Indication: SMOKING CESSATION THERAPY
     Dosage: UNK (TOOK WHITE PILLS FOR THREE DAYS)
     Dates: start: 2015
  3. TYLENOL WITH CODEINE [Concomitant]
     Active Substance: ACETAMINOPHEN\CODEINE PHOSPHATE
     Indication: BACK PAIN
     Dosage: 1 DF, 4X/DAY
     Dates: start: 2014, end: 2015

REACTIONS (7)
  - Depression [Not Recovered/Not Resolved]
  - Arthralgia [Unknown]
  - Foot deformity [Recovering/Resolving]
  - Condition aggravated [Not Recovered/Not Resolved]
  - Dyspnoea [Not Recovered/Not Resolved]
  - Weight decreased [Not Recovered/Not Resolved]
  - Decreased appetite [Not Recovered/Not Resolved]

NARRATIVE: CASE EVENT DATE: 2015
